FAERS Safety Report 7521480-9 (Version None)
Quarter: 2011Q2

REPORT INFORMATION
  Report Type: 
  Country: None (occurrence: None)
  Receive Date: 20110603
  Receipt Date: 20101223
  Transmission Date: 20111010
  Serious: Yes (Hospitalization, Other)
  Sender: FDA-Public Use
  Company Number: US-BAYER-201021553NA

PATIENT
  Age: 27 Year
  Sex: Female
  Weight: 88.435 kg

DRUGS (12)
  1. ASCORBIC ACID [Concomitant]
     Dosage: UNK UNK, PRN
  2. IBUPROFEN [Concomitant]
     Dosage: UNK UNK, PRN
  3. HYDROCODONE BITARTRATE [Concomitant]
  4. PROGESTERONE [Concomitant]
     Dosage: UNK
     Dates: start: 20050826
  5. METFORMIN HCL [Concomitant]
     Dosage: 500 MG, UNK
  6. FISH OIL [Concomitant]
  7. PROMETHAZINE [Concomitant]
  8. YAZ [Suspect]
     Dosage: UNK
     Dates: start: 20081101, end: 20090601
  9. NAPROSYN [Concomitant]
  10. MACROSID [Concomitant]
     Dosage: UNK UNK, TID
  11. YAZ [Suspect]
     Indication: CONTRACEPTION
     Dosage: AS USED DOSE: UNK
     Route: 048
     Dates: start: 20070701, end: 20080601
  12. MULTI-VITAMINS [Concomitant]
     Dosage: UNK UNK, PRN

REACTIONS (4)
  - GALLBLADDER CHOLESTEROLOSIS [None]
  - GALLBLADDER DISORDER [None]
  - CHOLECYSTITIS CHRONIC [None]
  - ANXIETY [None]
